FAERS Safety Report 24651585 (Version 3)
Quarter: 2024Q4

REPORT INFORMATION
  Report Type: Spontaneous
  Country: KR (occurrence: KR)
  Receive Date: 20241122
  Receipt Date: 20241129
  Transmission Date: 20250114
  Serious: No
  Sender: ASTELLAS
  Company Number: KR-ASTELLAS-2024-AER-019423

PATIENT
  Sex: Male

DRUGS (3)
  1. MIRABEGRON [Suspect]
     Active Substance: MIRABEGRON
     Indication: Product used for unknown indication
     Route: 065
     Dates: start: 20240202, end: 20240308
  2. HARNAL [Suspect]
     Active Substance: TAMSULOSIN HYDROCHLORIDE
     Indication: Product used for unknown indication
     Route: 065
     Dates: start: 20240202, end: 20240308
  3. VESICARE [Suspect]
     Active Substance: SOLIFENACIN SUCCINATE
     Indication: Product used for unknown indication
     Route: 065
     Dates: start: 20240202, end: 20240308

REACTIONS (1)
  - Micturition disorder [Unknown]

NARRATIVE: CASE EVENT DATE: 20240202
